FAERS Safety Report 8943708 (Version 2)
Quarter: 2013Q1

REPORT INFORMATION
  Report Type: Report from Study
  Country: JP (occurrence: JP)
  Receive Date: 20121204
  Receipt Date: 20130215
  Transmission Date: 20140127
  Serious: Yes (Life-Threatening, Other)
  Sender: FDA-Public Use
  Company Number: PHHY2012JP090441

PATIENT
  Age: 67 Year
  Sex: Female
  Weight: 46 kg

DRUGS (8)
  1. AFINITOR [Suspect]
     Indication: PANCREATIC NEUROENDOCRINE TUMOUR
     Dosage: 10 MG, DAILY
     Route: 048
     Dates: start: 20120305, end: 20120405
  2. AFINITOR [Suspect]
     Dosage: 5 MG, DAILY
     Route: 048
     Dates: start: 20120420, end: 20121109
  3. ALLOID [Concomitant]
     Indication: PROPHYLAXIS
     Dosage: 60 ML, UNK
     Route: 048
     Dates: start: 20120305
  4. OXYCONTIN [Concomitant]
     Indication: PANCREATIC NEUROENDOCRINE TUMOUR
     Dosage: 40 MG, UNK
     Route: 048
  5. PROMAC [Concomitant]
     Indication: PROPHYLAXIS
     Dosage: 150 MG, UNK
     Route: 048
     Dates: start: 20120305
  6. DEXALTIN [Concomitant]
     Indication: PROPHYLAXIS
     Route: 062
     Dates: start: 20120305
  7. LOXONIN [Concomitant]
     Indication: PANCREATIC NEUROENDOCRINE TUMOUR
     Dosage: 180 MG, UNK
     Route: 048
     Dates: end: 20120719
  8. FENTOS [Concomitant]
     Indication: PANCREATIC NEUROENDOCRINE TUMOUR
     Route: 062
     Dates: start: 20121026

REACTIONS (6)
  - Platelet count decreased [Recovered/Resolved]
  - Aspartate aminotransferase increased [Unknown]
  - Blood lactate dehydrogenase increased [Unknown]
  - Malignant neoplasm progression [Not Recovered/Not Resolved]
  - Blood alkaline phosphatase increased [Unknown]
  - Gamma-glutamyltransferase increased [Unknown]
